FAERS Safety Report 9004861 (Version 1)
Quarter: 2013Q1

REPORT INFORMATION
  Report Type: Spontaneous
  Country: US (occurrence: None)
  Receive Date: 20130107
  Receipt Date: 20130107
  Transmission Date: 20140127
  Serious: No
  Sender: FDA-Public Use
  Company Number: None

PATIENT
  Age: 29 None
  Sex: Female
  Weight: 51 kg

DRUGS (1)
  1. CLARITHROMYCIN [Suspect]
     Indication: VIRAL INFECTION
     Route: 048
     Dates: start: 20121224, end: 20121231

REACTIONS (2)
  - Dysgeusia [None]
  - Respiratory disorder [None]
